FAERS Safety Report 25492250 (Version 1)
Quarter: 2025Q2

REPORT INFORMATION
  Report Type: Spontaneous
  Country: GB (occurrence: GB)
  Receive Date: 20250630
  Receipt Date: 20250630
  Transmission Date: 20250716
  Serious: Yes (Death, Other)
  Sender: TEVA
  Company Number: None

PATIENT
  Age: 66 Year
  Sex: Male
  Weight: 95 kg

DRUGS (1)
  1. FLUOXETINE [Suspect]
     Active Substance: FLUOXETINE HYDROCHLORIDE
     Indication: Affective disorder
     Route: 065

REACTIONS (7)
  - Suicidal behaviour [Fatal]
  - Delusion [Unknown]
  - Paranoia [Unknown]
  - Anxiety [Unknown]
  - Confusional state [Unknown]
  - Serotonin syndrome [Unknown]
  - Mania [Unknown]

NARRATIVE: CASE EVENT DATE: 20250310
